FAERS Safety Report 14488641 (Version 5)
Quarter: 2018Q4

REPORT INFORMATION
  Report Type: Report from Study
  Country: US (occurrence: US)
  Receive Date: 20180205
  Receipt Date: 20181213
  Transmission Date: 20190204
  Serious: Yes (Hospitalization, Other)
  Sender: FDA-Public Use
  Company Number: US-ACTELION-A-NJ2018-166714

PATIENT
  Age: 35 Year
  Sex: Female
  Weight: 82.86 kg

DRUGS (4)
  1. ADCIRCA [Concomitant]
     Active Substance: TADALAFIL
  2. VELETRI [Suspect]
     Active Substance: EPOPROSTENOL
     Indication: PULMONARY ARTERIAL HYPERTENSION
     Dosage: 2.5 NG/KG, PER MIN
     Route: 042
  3. WARFARIN [Concomitant]
     Active Substance: WARFARIN
  4. LETAIRIS [Concomitant]
     Active Substance: AMBRISENTAN

REACTIONS (10)
  - Haemoptysis [Recovered/Resolved]
  - Flushing [Unknown]
  - Nausea [Recovering/Resolving]
  - Gastrointestinal disorder [Not Recovered/Not Resolved]
  - Oxygen saturation decreased [Unknown]
  - Diarrhoea [Unknown]
  - Pain in jaw [Unknown]
  - Migraine [Unknown]
  - Pulmonary veno-occlusive disease [Unknown]
  - Dyspnoea exertional [Unknown]

NARRATIVE: CASE EVENT DATE: 20180901
